FAERS Safety Report 19975356 (Version 2)
Quarter: 2021Q4

REPORT INFORMATION
  Report Type: Spontaneous
  Country: JP (occurrence: JP)
  Receive Date: 20211020
  Receipt Date: 20211029
  Transmission Date: 20220303
  Serious: Yes (Hospitalization, Other)
  Sender: FDA-Public Use
  Company Number: JP-PFIZER INC-202101375815

PATIENT
  Age: 39 Year
  Sex: Male

DRUGS (4)
  1. OXALIPLATIN [Suspect]
     Active Substance: OXALIPLATIN
     Indication: Colon cancer
     Dosage: 200 MG
     Route: 033
  2. FLUOROURACIL [Suspect]
     Active Substance: FLUOROURACIL
     Indication: Colon cancer
     Dosage: 1000 MG
     Route: 033
  3. MITOMYCIN C [Suspect]
     Active Substance: MITOMYCIN
     Indication: Colon cancer
     Dosage: 10 MG
     Route: 033
  4. SODIUM CHLORIDE [Concomitant]
     Active Substance: SODIUM CHLORIDE
     Dosage: 5 L (FLOW RATE OF 500-750 ML/MIN )

REACTIONS (1)
  - Encapsulating peritoneal sclerosis [Recovered/Resolved]
